FAERS Safety Report 24895471 (Version 1)
Quarter: 2025Q1

REPORT INFORMATION
  Report Type: Spontaneous
  Country: US (occurrence: None)
  Receive Date: 20250128
  Receipt Date: 20250128
  Transmission Date: 20250409
  Serious: Yes (Other)
  Sender: FDA-CTU
  Company Number: None

PATIENT
  Age: 11 Year
  Sex: Female
  Weight: 31.5 kg

DRUGS (1)
  1. OSELTAMIVIR [Suspect]
     Active Substance: OSELTAMIVIR
     Indication: Influenza
     Dates: start: 20250127, end: 20250128

REACTIONS (1)
  - Influenza virus test positive [None]

NARRATIVE: CASE EVENT DATE: 20250127
